FAERS Safety Report 8224063-0 (Version None)
Quarter: 2012Q1

REPORT INFORMATION
  Report Type: 
  Country: None (occurrence: None)
  Receive Date: 20120321
  Receipt Date: 20120319
  Transmission Date: 20120608
  Serious: Yes (Other)
  Sender: FDA-Public Use
  Company Number: PHHY2012NL017516

PATIENT
  Sex: Female
  Weight: 84 kg

DRUGS (6)
  1. ZOMETA [Suspect]
     Dosage: 4 MG/ 100 ML
     Dates: start: 20120228
  2. ZOMETA [Suspect]
     Dosage: 4 MG, PER 6 WEEKS
     Route: 042
  3. FASLODEX [Suspect]
  4. ZOMETA [Suspect]
     Indication: LUNG CANCER METASTATIC
     Dosage: 4 MG/ 100 ML
     Dates: start: 20110215
  5. ZOMETA [Suspect]
     Dosage: 4 MG/ 100 ML
     Dates: start: 20120116
  6. ZOMETA [Suspect]
     Dosage: UNK UKN, UNK
     Route: 042

REACTIONS (2)
  - NEOPLASM RECURRENCE [None]
  - PULMONARY EMBOLISM [None]
